FAERS Safety Report 5156010-2 (Version None)
Quarter: 2006Q4

REPORT INFORMATION
  Report Type: 
  Country: None (occurrence: None)
  Receive Date: 20061122
  Receipt Date: 20061116
  Transmission Date: 20070319
  Serious: Yes (Life-Threatening)
  Sender: FDA-Public Use
  Company Number: 2006PK02347

PATIENT
  Age: 64 Year
  Sex: Male

DRUGS (5)
  1. SEROQUEL [Suspect]
     Indication: SCHIZOPHRENIA, PARANOID TYPE
     Route: 048
     Dates: start: 20060831, end: 20060904
  2. DEPAKENE [Interacting]
     Indication: AFFECTIVE DISORDER
     Route: 048
     Dates: start: 20060831, end: 20060904
  3. FLUDEX [Concomitant]
     Indication: ESSENTIAL HYPERTENSION
     Route: 048
     Dates: end: 20060904
  4. ZESTORETIC [Concomitant]
     Indication: ESSENTIAL HYPERTENSION
     Route: 048
     Dates: end: 20060904
  5. NORVASC [Concomitant]
     Indication: ESSENTIAL HYPERTENSION
     Route: 048
     Dates: end: 20060904

REACTIONS (9)
  - DISORIENTATION [None]
  - DRUG INTERACTION [None]
  - EXTRAPYRAMIDAL DISORDER [None]
  - HYPOTENSION [None]
  - METABOLIC ACIDOSIS [None]
  - NEUROLEPTIC MALIGNANT SYNDROME [None]
  - PYREXIA [None]
  - RENAL FAILURE ACUTE [None]
  - RHABDOMYOLYSIS [None]
